FAERS Safety Report 6235303-1 (Version None)
Quarter: 2009Q2

REPORT INFORMATION
  Report Type: 
  Country: None (occurrence: None)
  Receive Date: 20090616
  Receipt Date: 20090601
  Transmission Date: 20091009
  Serious: Yes (Hospitalization)
  Sender: FDA-Public Use
  Company Number: 2009001644

PATIENT
  Age: 62 Year
  Sex: Female

DRUGS (5)
  1. ERLOTINIB (ERLOTINIB) (TABLE) (ERLOTINIB) [Suspect]
     Indication: HEAD AND NECK CANCER
     Dosage: 150 MG, QD, ORAL
     Route: 048
     Dates: start: 20090325, end: 20090522
  2. PENTACOL [Concomitant]
  3. GELCLAIR [Concomitant]
  4. RADIATION THERAPY [Concomitant]
  5. CISPLATIN [Suspect]
     Dosage: INTRAVENOUS
     Route: 042

REACTIONS (2)
  - HAEMOGLOBIN DECREASED [None]
  - MUCOSAL INFLAMMATION [None]
